FAERS Safety Report 13668407 (Version 1)
Quarter: 2017Q2

REPORT INFORMATION
  Report Type: Spontaneous
  Country: US (occurrence: US)
  Receive Date: 20170619
  Receipt Date: 20170619
  Transmission Date: 20170830
  Serious: Yes (Life-Threatening, Disabling, Other)
  Sender: FDA-Public Use
  Company Number: None

PATIENT
  Age: 54 Year
  Sex: Female
  Weight: 60.3 kg

DRUGS (5)
  1. DIAZEPAM. [Suspect]
     Active Substance: DIAZEPAM
     Indication: PRODUCT USED FOR UNKNOWN INDICATION
     Route: 048
     Dates: start: 20111211
  2. VIVELLE-DOT [Concomitant]
     Active Substance: ESTRADIOL
  3. MAGNESIUM [Concomitant]
     Active Substance: MAGNESIUM
  4. CARAFATE [Concomitant]
     Active Substance: SUCRALFATE
  5. VALIUM [Concomitant]
     Active Substance: DIAZEPAM

REACTIONS (2)
  - Withdrawal syndrome [None]
  - Dyspepsia [None]

NARRATIVE: CASE EVENT DATE: 20111211
